FAERS Safety Report 12474843 (Version 2)
Quarter: 2016Q2

REPORT INFORMATION
  Report Type: Spontaneous
  Country: JP (occurrence: JP)
  Receive Date: 20160617
  Receipt Date: 20160622
  Transmission Date: 20160815
  Serious: Yes (Other)
  Sender: FDA-Public Use
  Company Number: JP-ROCHE-1723259

PATIENT
  Age: 73 Year
  Sex: Male

DRUGS (8)
  1. VEGAMOX [Concomitant]
     Active Substance: MOXIFLOXACIN HYDROCHLORIDE
     Indication: ENDOPHTHALMITIS
     Route: 065
  2. BROMFENAC SODIUM [Concomitant]
     Active Substance: BROMFENAC SODIUM
     Indication: EYE INFLAMMATION
     Route: 047
     Dates: start: 20140905, end: 20141130
  3. VEGAMOX [Concomitant]
     Active Substance: MOXIFLOXACIN HYDROCHLORIDE
     Indication: INFECTION PROPHYLAXIS
     Dosage: 1 DRP, QID
     Route: 047
     Dates: start: 20140905, end: 20141130
  4. MYDRIN P [Concomitant]
     Active Substance: PHENYLEPHRINE HYDROCHLORIDE\TROPICAMIDE
     Indication: ACCOMMODATION DISORDER
     Dosage: 1 DRP, TID
     Route: 047
     Dates: start: 20140904, end: 20140925
  5. LUCENTIS [Suspect]
     Active Substance: RANIBIZUMAB
     Indication: RETINAL VEIN OCCLUSION
     Route: 050
     Dates: start: 20140423, end: 20140423
  6. NORVASC [Concomitant]
     Active Substance: AMLODIPINE BESYLATE
     Indication: HYPERTENSION
     Route: 048
  7. LUCENTIS [Suspect]
     Active Substance: RANIBIZUMAB
     Indication: MACULAR OEDEMA
     Dosage: 0.5 MG, UNK
     Route: 050
     Dates: start: 20140611, end: 20140611
  8. RINDERON V [Concomitant]
     Active Substance: BETAMETHASONE VALERATE
     Indication: EYE INFLAMMATION
     Route: 047
     Dates: start: 20140904, end: 20140916

REACTIONS (3)
  - Endophthalmitis [Recovered/Resolved]
  - Conjunctival hyperaemia [Unknown]
  - Hypopyon [Unknown]

NARRATIVE: CASE EVENT DATE: 20140916
